FAERS Safety Report 14302643 (Version 1)
Quarter: 2017Q4

REPORT INFORMATION
  Report Type: Report from Study
  Country: US (occurrence: US)
  Receive Date: 20171219
  Receipt Date: 20171219
  Transmission Date: 20180321
  Serious: Yes (Other)
  Sender: FDA-Public Use
  Company Number: US-BRISTOL-MYERS SQUIBB COMPANY-BMS-2017-095440

PATIENT
  Sex: Male

DRUGS (2)
  1. PAXIL [Concomitant]
     Active Substance: PAROXETINE HYDROCHLORIDE
     Indication: PRODUCT USED FOR UNKNOWN INDICATION
     Dosage: UNK
     Route: 065
  2. NIVOLUMAB [Suspect]
     Active Substance: NIVOLUMAB
     Indication: METASTATIC MALIGNANT MELANOMA
     Dosage: UNK
     Route: 065

REACTIONS (9)
  - Weight increased [Unknown]
  - Frequent bowel movements [Unknown]
  - Asthenia [Unknown]
  - Fatigue [Unknown]
  - Thyroid disorder [Recovering/Resolving]
  - Increased appetite [Not Recovered/Not Resolved]
  - Haemorrhage [Unknown]
  - Diarrhoea [Recovering/Resolving]
  - Incontinence [Unknown]
